FAERS Safety Report 20993430 (Version 1)
Quarter: 2022Q2

REPORT INFORMATION
  Report Type: Spontaneous
  Country: US (occurrence: US)
  Receive Date: 20220622
  Receipt Date: 20220622
  Transmission Date: 20220720
  Serious: No
  Sender: FDA-Public Use
  Company Number: US-TEVA-2022-US-2047234

PATIENT
  Sex: Female

DRUGS (3)
  1. QNASL [Suspect]
     Active Substance: BECLOMETHASONE DIPROPIONATE
     Indication: Product used for unknown indication
     Route: 065
  2. QNASL [Suspect]
     Active Substance: BECLOMETHASONE DIPROPIONATE
  3. QNASL [Suspect]
     Active Substance: BECLOMETHASONE DIPROPIONATE

REACTIONS (6)
  - Headache [Unknown]
  - Ear pain [Unknown]
  - Toothache [Unknown]
  - Sinus pain [Unknown]
  - Swelling face [Unknown]
  - Product availability issue [Unknown]
